FAERS Safety Report 6830494-3 (Version None)
Quarter: 2010Q3

REPORT INFORMATION
  Report Type: 
  Country: None (occurrence: None)
  Receive Date: 20100712
  Receipt Date: 20100630
  Transmission Date: 20110219
  Serious: No
  Sender: FDA-Public Use
  Company Number: US-BIOGENIDEC-2010BI022177

PATIENT
  Sex: Female

DRUGS (3)
  1. AVONEX [Suspect]
     Indication: MULTIPLE SCLEROSIS
     Route: 030
     Dates: start: 20010320, end: 20050411
  2. AVONEX [Suspect]
     Route: 030
     Dates: start: 20060114, end: 20080313
  3. AVONEX [Suspect]
     Route: 030
     Dates: start: 20080518

REACTIONS (3)
  - BACK PAIN [None]
  - BALANCE DISORDER [None]
  - GAIT DISTURBANCE [None]
